FAERS Safety Report 20813189 (Version 2)
Quarter: 2022Q2

REPORT INFORMATION
  Report Type: Spontaneous
  Country: DE (occurrence: DE)
  Receive Date: 20220511
  Receipt Date: 20220531
  Transmission Date: 20220720
  Serious: No
  Sender: FDA-Public Use
  Company Number: DE-AMGEN-DEUSP2022076608

PATIENT
  Age: 73 Year
  Sex: Male

DRUGS (1)
  1. XGEVA [Suspect]
     Active Substance: DENOSUMAB
     Indication: Product used for unknown indication
     Dosage: 120 MILLIGRAM, Q4WK
     Route: 065

REACTIONS (4)
  - Osteosclerosis [Unknown]
  - Dental care [Unknown]
  - Back pain [Unknown]
  - Tooth extraction [Unknown]

NARRATIVE: CASE EVENT DATE: 20220101
